FAERS Safety Report 7756279-1 (Version None)
Quarter: 2011Q3

REPORT INFORMATION
  Report Type: 
  Country: None (occurrence: None)
  Receive Date: 20110916
  Receipt Date: 20110908
  Transmission Date: 20111222
  Serious: Yes (Other)
  Sender: FDA-Public Use
  Company Number: US-AMGEN-USASP2011046177

PATIENT
  Age: 39 Year
  Sex: Female

DRUGS (2)
  1. ENBREL [Suspect]
     Indication: PSORIATIC ARTHROPATHY
     Dosage: 50 MG, QWK
     Dates: start: 20110907
  2. METHOTREXATE [Concomitant]
     Dosage: 1 MG, QWK
     Dates: start: 20090101

REACTIONS (10)
  - PRESYNCOPE [None]
  - PALLOR [None]
  - TONGUE BITING [None]
  - FATIGUE [None]
  - PSORIATIC ARTHROPATHY [None]
  - EYE MOVEMENT DISORDER [None]
  - MUSCLE SPASMS [None]
  - FALL [None]
  - HYPOACUSIS [None]
  - FACIAL SPASM [None]
